FAERS Safety Report 20473795 (Version 1)
Quarter: 2022Q1

REPORT INFORMATION
  Report Type: Spontaneous
  Country: US (occurrence: None)
  Receive Date: 20220214
  Receipt Date: 20220214
  Transmission Date: 20220424
  Serious: No
  Sender: FDA-Public Use
  Company Number: None

PATIENT
  Sex: Female

DRUGS (1)
  1. COSENTYX [Suspect]
     Active Substance: SECUKINUMAB
     Indication: Ankylosing spondylitis
     Dosage: 300MG/ML EVERY 4 WEEKS SUBCUTANEOUSLY?
     Route: 058
     Dates: start: 20220107

REACTIONS (2)
  - Condition aggravated [None]
  - Drug ineffective [None]
